FAERS Safety Report 17612216 (Version 1)
Quarter: 2020Q2

REPORT INFORMATION
  Report Type: Spontaneous
  Country: FR (occurrence: FR)
  Receive Date: 20200401
  Receipt Date: 20200401
  Transmission Date: 20200713
  Serious: Yes (Other)
  Sender: FDA-Public Use
  Company Number: FR-US-PROVELL PHARMACEUTICALS LLC-E2B_90076122

PATIENT
  Age: 69 Year
  Sex: Female
  Weight: 73 kg

DRUGS (1)
  1. LEVOTHYROX [Suspect]
     Active Substance: LEVOTHYROXINE
     Indication: THYROID DISORDER
     Route: 048
     Dates: start: 2017, end: 2017

REACTIONS (5)
  - Gait disturbance [Recovered/Resolved]
  - Myalgia [Recovered/Resolved]
  - Abdominal pain [Recovered/Resolved]
  - Headache [Recovered/Resolved]
  - Asthenia [Recovered/Resolved]

NARRATIVE: CASE EVENT DATE: 2017
